FAERS Safety Report 18315228 (Version 1)
Quarter: 2020Q3

REPORT INFORMATION
  Report Type: Spontaneous
  Country: AU (occurrence: AU)
  Receive Date: 20200926
  Receipt Date: 20200926
  Transmission Date: 20201103
  Serious: Yes (Hospitalization)
  Sender: FDA-Public Use
  Company Number: NVSC2020AU255123

PATIENT
  Sex: Female

DRUGS (3)
  1. SANDOSTATIN [Suspect]
     Active Substance: OCTREOTIDE ACETATE
  2. SANDOSTATIN [Suspect]
     Active Substance: OCTREOTIDE ACETATE
     Indication: PRODUCT USED FOR UNKNOWN INDICATION
     Dosage: 30 MG, Q4W
     Route: 058
     Dates: start: 20200916
  3. SANDOSTATIN [Suspect]
     Active Substance: OCTREOTIDE ACETATE

REACTIONS (2)
  - Tibia fracture [Unknown]
  - Fall [Unknown]
